FAERS Safety Report 12998489 (Version 1)
Quarter: 2016Q4

REPORT INFORMATION
  Report Type: Spontaneous
  Country: IT (occurrence: IT)
  Receive Date: 20161205
  Receipt Date: 20161205
  Transmission Date: 20170207
  Serious: Yes (Hospitalization)
  Sender: FDA-Public Use
  Company Number: IT-PFIZER INC-2016560051

PATIENT
  Age: 96 Year
  Sex: Female

DRUGS (7)
  1. AMLODIPINE BESILATE [Suspect]
     Active Substance: AMLODIPINE BESYLATE
     Indication: HYPERTENSION
     Dosage: UNK
     Dates: start: 20160101, end: 20161005
  2. TAVOR (LORAZEPAM) [Concomitant]
     Active Substance: LORAZEPAM
  3. LAEVOLAC [Concomitant]
     Active Substance: LACTULOSE
  4. LARGACTIL /00011901/ [Concomitant]
     Active Substance: CHLORPROMAZINE
  5. CLEXANE [Concomitant]
     Active Substance: ENOXAPARIN SODIUM
  6. BISOPROLOL HEMIFUMARATE [Suspect]
     Active Substance: BISOPROLOL FUMARATE
     Indication: HYPERTENSION
     Dosage: UNK
     Route: 048
     Dates: start: 20160102, end: 20161005
  7. TRITTICO [Concomitant]
     Active Substance: TRAZODONE HYDROCHLORIDE

REACTIONS (1)
  - Cardiac failure [Recovered/Resolved]

NARRATIVE: CASE EVENT DATE: 20161005
